FAERS Safety Report 10458018 (Version 2)
Quarter: 2014Q3

REPORT INFORMATION
  Report Type: Spontaneous
  Country: CZ (occurrence: CZ)
  Receive Date: 20140916
  Receipt Date: 20140929
  Transmission Date: 20150326
  Serious: Yes (Hospitalization, Other)
  Sender: FDA-Public Use
  Company Number: CZ-AMGEN-CZESP2014069699

PATIENT
  Age: 71 Year
  Sex: Male
  Weight: 81 kg

DRUGS (12)
  1. VECTIBIX [Suspect]
     Active Substance: PANITUMUMAB
     Indication: PRODUCT USED FOR UNKNOWN INDICATION
     Dosage: 438 MG, Q2W
     Route: 042
     Dates: start: 2014
  2. DOLMINA                            /00372302/ [Concomitant]
     Dosage: 100 MG, 1 TAB DAILY
  3. PRESTARIUM                         /00790701/ [Concomitant]
     Dosage: 4 MG, 1-0-0
     Route: 048
     Dates: start: 2011
  4. PROPYCIL [Concomitant]
     Dosage: UNK UNK, 1-0-0
     Route: 048
     Dates: start: 2012
  5. OXYCONTIN [Concomitant]
     Active Substance: OXYCODONE HYDROCHLORIDE
     Dosage: 30 MG, BID ( 1 TAB TWICE DAILY)
  6. OXYPHYLLIN [Concomitant]
     Dosage: 1 TAB DAILY, 1-0-0
     Route: 048
     Dates: start: 2006
  7. DOLMINA                            /00372302/ [Concomitant]
     Dosage: 100 MG, AS NEEDED
     Route: 048
     Dates: start: 201306
  8. FOKUSIN [Concomitant]
     Dosage: UNK UNK, 1-0-0 (1 TAB DAILY)
     Route: 048
     Dates: start: 2013
  9. MILURIT [Concomitant]
     Active Substance: ALLOPURINOL
     Indication: GOUT
     Dosage: 100 MG, 1-0-0
     Route: 048
     Dates: start: 2006
  10. KYLOTAN [Concomitant]
     Dosage: UNK UNK, 1-0-0
     Route: 048
  11. OXYCONTIN [Concomitant]
     Active Substance: OXYCODONE HYDROCHLORIDE
     Dosage: 20 MG, 1-0-1
     Route: 048
     Dates: start: 2012
  12. VECTIBIX [Suspect]
     Active Substance: PANITUMUMAB
     Dosage: UNK
     Route: 042

REACTIONS (10)
  - Leukopenia [Unknown]
  - Tension [Unknown]
  - Anxiety [Unknown]
  - Chest pain [Unknown]
  - Disinhibition [Unknown]
  - Affective disorder [Unknown]
  - Chills [Unknown]
  - Decreased appetite [Unknown]
  - Stress cardiomyopathy [Unknown]
  - Dysphoria [Unknown]

NARRATIVE: CASE EVENT DATE: 20140819
